FAERS Safety Report 14719911 (Version 1)
Quarter: 2018Q1

REPORT INFORMATION
  Report Type: Spontaneous
  Country: US (occurrence: US)
  Receive Date: 20180330
  Receipt Date: 20180330
  Transmission Date: 20180509
  Serious: Yes (Hospitalization)
  Sender: FDA-Public Use
  Company Number: None

PATIENT
  Age: 9 Year
  Sex: Female

DRUGS (1)
  1. CRIZOTINIB [Suspect]
     Active Substance: CRIZOTINIB
     Indication: NEUROBLASTOMA
     Route: 048
     Dates: start: 20170611, end: 20170715

REACTIONS (6)
  - Parenteral nutrition [None]
  - Oesophagitis [None]
  - Weight gain poor [None]
  - Anorectal discomfort [None]
  - Burning sensation mucosal [None]
  - Mucous stools [None]

NARRATIVE: CASE EVENT DATE: 20170705
